FAERS Safety Report 4929022-9 (Version None)
Quarter: 2006Q1

REPORT INFORMATION
  Report Type: 
  Country: None (occurrence: None)
  Receive Date: 20060301
  Receipt Date: 20050112
  Transmission Date: 20060701
  Serious: Yes (Hospitalization)
  Sender: FDA-Public Use
  Company Number: US-MERCK-0501USA02362

PATIENT
  Age: 66 Year
  Sex: Male
  Weight: 116 kg

DRUGS (3)
  1. VIOXX [Suspect]
     Indication: ARTHRITIS
     Route: 048
     Dates: start: 20010201, end: 20030101
  2. VIOXX [Suspect]
     Indication: BACK DISORDER
     Route: 048
     Dates: start: 20010201, end: 20030101
  3. ANACIN [Concomitant]
     Route: 065

REACTIONS (19)
  - ABDOMINAL PAIN [None]
  - ACUTE MYOCARDIAL INFARCTION [None]
  - ATRIAL FLUTTER [None]
  - BACK DISORDER [None]
  - BLOOD PRESSURE INCREASED [None]
  - CHEST PAIN [None]
  - CORONARY ARTERY DISEASE [None]
  - CULTURE URINE POSITIVE [None]
  - DIABETIC NEUROPATHY [None]
  - DYSPNOEA [None]
  - ERECTILE DYSFUNCTION [None]
  - FATIGUE [None]
  - GROIN ABSCESS [None]
  - GROIN PAIN [None]
  - HEADACHE [None]
  - HYPERLIPIDAEMIA [None]
  - HYPERTENSION [None]
  - OEDEMA PERIPHERAL [None]
  - SOMNOLENCE [None]
